FAERS Safety Report 7269502-7 (Version None)
Quarter: 2011Q1

REPORT INFORMATION
  Report Type: 
  Country: None (occurrence: None)
  Receive Date: 20110202
  Receipt Date: 20101007
  Transmission Date: 20110831
  Serious: Yes (Hospitalization)
  Sender: FDA-Public Use
  Company Number: US-BAYER-201034871NA

PATIENT
  Sex: Female
  Weight: 85.261 kg

DRUGS (12)
  1. XYZAL [Concomitant]
     Dosage: 5 MG, UNK
  2. YASMIN [Suspect]
     Indication: PRODUCT USED FOR UNKNOWN INDICATION
  3. UNCODEABLE ^UNCLASSIFIABLE^ [Concomitant]
     Indication: ATTENTION DEFICIT/HYPERACTIVITY DISORDER
     Dosage: UNK
     Dates: start: 20081101
  4. YAZ [Suspect]
     Indication: ACNE
     Dosage: UNK
     Dates: start: 20070101, end: 20080101
  5. CLOBEX [Concomitant]
     Dosage: 0.005 UNK, UNK
     Route: 061
  6. DEXPAK [Concomitant]
  7. OCELLA [Suspect]
     Indication: PRODUCT USED FOR UNKNOWN INDICATION
  8. UNCODEABLE ^UNCLASSIFIABLE^ [Concomitant]
  9. ALEVE [Concomitant]
  10. IBUPROFEN AL [Concomitant]
  11. SYNTHROID [Concomitant]
     Indication: THYROID DISORDER
     Dosage: 137 NOT APPLICABLE, UNK
  12. YAZ [Suspect]
     Dosage: UNK
     Dates: start: 20090101, end: 20090301

REACTIONS (7)
  - CHOLECYSTITIS [None]
  - ABDOMINAL PAIN [None]
  - GASTROINTESTINAL DISORDER [None]
  - DYSPEPSIA [None]
  - GALLBLADDER DISORDER [None]
  - CHOLELITHIASIS [None]
  - CHOLECYSTITIS CHRONIC [None]
